FAERS Safety Report 4350530-6 (Version None)
Quarter: 2004Q2

REPORT INFORMATION
  Report Type: 
  Country: None (occurrence: None)
  Receive Date: 20040428
  Receipt Date: 20040428
  Transmission Date: 20050107
  Serious: No
  Sender: FDA-Public Use
  Company Number: None

PATIENT
  Sex: Male
  Weight: 75.7507 kg

DRUGS (6)
  1. RISPERDAL [Suspect]
     Indication: SCHIZOPHRENIA
     Dosage: 2 MG IN THE MOR ORAL
     Route: 048
     Dates: start: 20031006, end: 20040302
  2. RISPERDAL [Suspect]
     Dosage: 4 MG AT BEDTIME ORAL
     Route: 048
     Dates: start: 20031006, end: 20040302
  3. HALOPERIDONE DECANOATE [Concomitant]
  4. BENZTROPINE MESYLATE [Concomitant]
  5. CEFUROXIME [Concomitant]
  6. LEVOFLOXACIN [Concomitant]

REACTIONS (2)
  - NEUTROPHIL COUNT DECREASED [None]
  - WHITE BLOOD CELL COUNT DECREASED [None]
